FAERS Safety Report 8586109-X (Version None)
Quarter: 2012Q3

REPORT INFORMATION
  Report Type: 
  Country: None (occurrence: None)
  Receive Date: 20120810
  Receipt Date: 20120806
  Transmission Date: 20120928
  Serious: Yes (Hospitalization, Other)
  Sender: FDA-Public Use
  Company Number: US-ROCHE-1094609

PATIENT
  Sex: Female

DRUGS (4)
  1. PEGASYS [Suspect]
     Indication: HEPATITIS C
     Route: 058
     Dates: start: 20120628
  2. ATIVAN [Concomitant]
     Indication: INSOMNIA
  3. RIBAVIRIN [Suspect]
     Indication: HEPATITIS C
     Dosage: DIVIDED DOSES OF 600 AND 400 MG
     Route: 048
     Dates: start: 20120628
  4. TELAPREVIR [Suspect]
     Indication: HEPATITIS C
     Dates: start: 20120628

REACTIONS (5)
  - CHEST DISCOMFORT [None]
  - INSOMNIA [None]
  - CARDIAC PACEMAKER INSERTION [None]
  - CARDIAC ARREST [None]
  - ANXIETY [None]
